FAERS Safety Report 6370727-3 (Version None)
Quarter: 2009Q3

REPORT INFORMATION
  Report Type: 
  Country: None (occurrence: None)
  Receive Date: 20090923
  Receipt Date: 20070626
  Transmission Date: 20100115
  Serious: No
  Sender: FDA-Public Use
  Company Number: US-ASTRAZENECA-2006UW25184

PATIENT
  Age: 53 Year
  Sex: Male
  Weight: 86.2 kg

DRUGS (16)
  1. SEROQUEL [Suspect]
     Indication: BIPOLAR DISORDER
     Dosage: 50 MG- 500 MG
     Route: 048
     Dates: start: 20050526
  2. SEROQUEL [Suspect]
     Indication: DEPRESSION
     Dosage: 50 MG- 500 MG
     Route: 048
     Dates: start: 20050526
  3. GLUCOPHAGE [Concomitant]
  4. GLUCOTROL [Concomitant]
  5. DEPAKOTE [Concomitant]
  6. FENOFIBRATE [Concomitant]
  7. LIPITOR [Concomitant]
  8. CATAPRES [Concomitant]
  9. TENORMIN [Concomitant]
  10. PANTOPRAZOLE SODIUM [Concomitant]
  11. DOXYCYCLINE [Concomitant]
  12. HEPARIN SODIUM [Concomitant]
  13. ZESTRIL [Concomitant]
  14. TYLENOL (CAPLET) [Concomitant]
  15. ACCU-HUMALOG [Concomitant]
  16. VANCOMYCIN HCL [Concomitant]

REACTIONS (1)
  - DIABETES MELLITUS [None]
